FAERS Safety Report 9994982 (Version 3)
Quarter: 2014Q2

REPORT INFORMATION
  Report Type: Spontaneous
  Country: US (occurrence: US)
  Receive Date: 20140311
  Receipt Date: 20140410
  Transmission Date: 20141212
  Serious: Yes (Life-Threatening, Hospitalization, Other)
  Sender: FDA-Public Use
  Company Number: US-009507513-1403USA003281

PATIENT
  Age: 27 Year
  Sex: Female
  Weight: 70.3 kg

DRUGS (2)
  1. NEXPLANON [Suspect]
     Indication: CONTRACEPTION
     Dosage: 68 MG EVERY THREE YEARS
     Route: 058
     Dates: start: 20140113, end: 20140204
  2. METHADONE HYDROCHLORIDE [Concomitant]
     Dosage: 10 MG, QD
     Route: 048

REACTIONS (6)
  - Ectopic pregnancy [Recovered/Resolved]
  - Salpingectomy [Recovered/Resolved]
  - Ectopic pregnancy termination [Recovered/Resolved]
  - Anaemia [Unknown]
  - Unintended pregnancy [Recovered/Resolved]
  - Exposure during breast feeding [Unknown]
